FAERS Safety Report 10666778 (Version 1)
Quarter: 2014Q4

REPORT INFORMATION
  Report Type: Spontaneous
  Country: US (occurrence: None)
  Receive Date: 20141219
  Receipt Date: 20141219
  Transmission Date: 20150529
  Serious: Yes (Death)
  Sender: FDA-Public Use
  Company Number: None

PATIENT
  Age: 69 Year
  Sex: Female
  Weight: 81.65 kg

DRUGS (1)
  1. VPRIV [Suspect]
     Active Substance: VELAGLUCERASE ALFA
     Indication: GAUCHER^S DISEASE
     Dosage: 4800 IU FOR 1 HOUR EVERY 2  INTO VIEN
     Route: 042

REACTIONS (5)
  - Aphasia [None]
  - Poor quality drug administered [None]
  - Product contamination [None]
  - Septic shock [None]
  - Fluid retention [None]

NARRATIVE: CASE EVENT DATE: 20140509
